FAERS Safety Report 7908039-6 (Version None)
Quarter: 2011Q4

REPORT INFORMATION
  Report Type: 
  Country: None (occurrence: None)
  Receive Date: 20111110
  Receipt Date: 20111104
  Transmission Date: 20120403
  Serious: Yes (Other)
  Sender: FDA-Public Use
  Company Number: US-AMGEN-USASP2011057773

PATIENT
  Age: 55 Year
  Sex: Female

DRUGS (1)
  1. ENBREL [Suspect]
     Indication: PSORIATIC ARTHROPATHY
     Dosage: 25 MG, 2 TIMES/WK
     Dates: start: 20040501

REACTIONS (6)
  - TYPE 2 DIABETES MELLITUS [None]
  - BRONCHITIS [None]
  - PSORIATIC ARTHROPATHY [None]
  - DRUG EFFECT DECREASED [None]
  - SKIN CANCER [None]
  - MELANOCYTIC NAEVUS [None]
